FAERS Safety Report 11054119 (Version 2)
Quarter: 2015Q2

REPORT INFORMATION
  Report Type: Report from Study
  Country: DE (occurrence: DE)
  Receive Date: 20150422
  Receipt Date: 20150609
  Transmission Date: 20150821
  Serious: Yes (Hospitalization)
  Sender: FDA-Public Use
  Company Number: DE-ABBVIE-15K-062-1377200-00

PATIENT
  Age: 24 Year
  Sex: Female
  Weight: 96 kg

DRUGS (4)
  1. HUMIRA [Suspect]
     Active Substance: ADALIMUMAB
     Route: 058
     Dates: start: 2015
  2. BUDESONIDE. [Concomitant]
     Active Substance: BUDESONIDE
     Indication: PRODUCT USED FOR UNKNOWN INDICATION
     Route: 048
  3. HUMIRA [Suspect]
     Active Substance: ADALIMUMAB
     Indication: CROHN^S DISEASE
     Route: 058
     Dates: start: 20141216, end: 20150410
  4. AZATHIOPRINE. [Suspect]
     Active Substance: AZATHIOPRINE
     Indication: PRODUCT USED FOR UNKNOWN INDICATION
     Route: 065
     Dates: start: 20140415, end: 20150410

REACTIONS (11)
  - Mean cell volume increased [Unknown]
  - Pseudomonas test positive [Unknown]
  - Aspartate aminotransferase increased [Unknown]
  - Immunosuppression [Unknown]
  - Red blood cell count decreased [Unknown]
  - Subileus [Recovering/Resolving]
  - Haematocrit decreased [Unknown]
  - Gastroenteritis [Recovering/Resolving]
  - Opportunistic infection [Recovering/Resolving]
  - Glycosylated haemoglobin decreased [Unknown]
  - Haemoglobin decreased [Unknown]

NARRATIVE: CASE EVENT DATE: 20150405
